FAERS Safety Report 7326794-3 (Version None)
Quarter: 2011Q1

REPORT INFORMATION
  Report Type: 
  Country: None (occurrence: None)
  Receive Date: 20110302
  Receipt Date: 20100422
  Transmission Date: 20110831
  Serious: Yes (Other)
  Sender: FDA-Public Use
  Company Number: US-PFIZER INC-2009314337

PATIENT
  Sex: Female

DRUGS (11)
  1. ZOLOFT [Concomitant]
     Indication: ANXIETY
  2. NEURONTIN [Concomitant]
     Indication: FIBROMYALGIA
     Dosage: 600 MG, 3X/DAY
     Route: 048
  3. DARVOCET [Concomitant]
     Indication: PAIN
     Dosage: UNK
     Route: 048
  4. ROBAXIN [Concomitant]
     Dosage: 300 MG, 3X/DAY
     Route: 048
  5. DILANTIN [Suspect]
     Dosage: UNK
     Route: 048
     Dates: start: 20070622
  6. ZOLOFT [Concomitant]
     Indication: DEPRESSION
     Dosage: 100 MG, 1X/DAY
     Route: 048
  7. XANAX [Concomitant]
     Indication: ANXIETY
     Dosage: 1 MG, 3X/DAY
     Route: 048
  8. AMITRIPTYLINE [Concomitant]
     Dosage: 25 MG, 1X/DAY
     Route: 048
  9. HYDROCHLOROTHIAZIDE [Concomitant]
     Dosage: 25 MG, 1X/DAY
     Route: 048
  10. DILANTIN [Suspect]
     Indication: CONVULSION
     Dosage: 100 MG, 4X/DAY
     Route: 048
     Dates: start: 20070802
  11. PROTONIX [Concomitant]
     Indication: GASTROOESOPHAGEAL REFLUX DISEASE
     Dosage: 40 MG, 1X/DAY
     Route: 048

REACTIONS (1)
  - STEVENS-JOHNSON SYNDROME [None]
